FAERS Safety Report 6005642-8 (Version None)
Quarter: 2008Q4

REPORT INFORMATION
  Report Type: 
  Country: None (occurrence: None)
  Receive Date: 20081217
  Receipt Date: 20081215
  Transmission Date: 20090506
  Serious: Yes (Hospitalization)
  Sender: FDA-Public Use
  Company Number: DE-WYE-G02792008

PATIENT
  Age: 40 Year
  Sex: Female
  Weight: 70 kg

DRUGS (2)
  1. VENLAFAXINE HCL [Suspect]
     Dosage: AN OVERDOSE AMOUNT OF 3 TABLETS OR CAPSULES
     Route: 048
     Dates: start: 20081215, end: 20081215
  2. TRIMIPRAMINE MALEATE [Suspect]
     Dosage: 10 TABLETS (OVERDOSE AMOUNT 1000 MG)
     Route: 048
     Dates: start: 20081215, end: 20081215

REACTIONS (4)
  - DYSARTHRIA [None]
  - EXTRAPYRAMIDAL DISORDER [None]
  - INTENTIONAL OVERDOSE [None]
  - SUICIDE ATTEMPT [None]
